FAERS Safety Report 24018962 (Version 1)
Quarter: 2024Q2

REPORT INFORMATION
  Report Type: Other
  Country: US (occurrence: US)
  Receive Date: 20240627
  Receipt Date: 20240627
  Transmission Date: 20240716
  Serious: Yes (Other)
  Sender: FDA-Public Use
  Company Number: US-Fagron Sterile Services-2158572

PATIENT
  Age: 22 Year
  Sex: Female
  Weight: 75.3 kg

DRUGS (1)
  1. BUPIVACAINE HYDROCHLORIDE\FENTANYL CITRATE [Suspect]
     Active Substance: BUPIVACAINE HYDROCHLORIDE\FENTANYL CITRATE

REACTIONS (1)
  - Drug ineffective [Recovered/Resolved]
